FAERS Safety Report 21681092 (Version 1)
Quarter: 2022Q4

REPORT INFORMATION
  Report Type: Spontaneous
  Country: GB (occurrence: GB)
  Receive Date: 20221205
  Receipt Date: 20221205
  Transmission Date: 20230112
  Serious: Yes (Other)
  Sender: FDA-Public Use
  Company Number: GB-MHRA-TPP21232624C5644282YC1668157945828

PATIENT
  Age: 86 Year
  Sex: Male
  Weight: 70 kg

DRUGS (10)
  1. NAPROXEN [Suspect]
     Active Substance: NAPROXEN
     Indication: Product used for unknown indication
     Dosage: 250 MILLIGRAM, TWO TIMES A DAY
     Route: 065
     Dates: start: 20221028
  2. BECONASE AQ [Concomitant]
     Active Substance: BECLOMETHASONE DIPROPIONATE MONOHYDRATE
     Indication: Product used for unknown indication
     Dosage: 2 DOSAGE FORM, TWO TIMES A DAY (BOTH NOSTRIL)
     Route: 045
     Dates: start: 20220107
  3. BETAMETHASONE VALERATE AND NEOMYCIN SULFATE [Concomitant]
     Indication: Product used for unknown indication
     Dosage: UNK (SPARINGLY TO AFFECTED SKIN OF BACK ...)
     Route: 061
     Dates: start: 20220107
  4. DIAZEPAM [Concomitant]
     Active Substance: DIAZEPAM
     Indication: Muscle spasms
     Dosage: 1 DOSAGE FORM, TWO TIMES A DAY (1 TWICE A DAY FOR MUSCLE SPASMS)
     Route: 065
     Dates: start: 20220408
  5. EPROSARTAN [Concomitant]
     Active Substance: EPROSARTAN
     Indication: Product used for unknown indication
     Dosage: 1 DOSAGE FORM, ONCE A DAY
     Route: 065
     Dates: start: 20220408
  6. FINASTERIDE [Concomitant]
     Active Substance: FINASTERIDE
     Indication: Prostatic disorder
     Dosage: 1 DOSAGE FORM, ONCE A DAY
     Route: 065
     Dates: start: 20220107
  7. OMEPRAZOLE [Concomitant]
     Active Substance: OMEPRAZOLE
     Indication: Gastrooesophageal reflux disease
     Dosage: 1 DOSAGE FORM, TWO TIMES A DAY
     Route: 065
     Dates: start: 20220107
  8. CALCIUM CARBONATE\SODIUM ALGINATE\SODIUM BICARBONATE [Concomitant]
     Active Substance: CALCIUM CARBONATE\SODIUM ALGINATE\SODIUM BICARBONATE
     Indication: Product used for unknown indication
     Dosage: 10 MILLILITER AS NECESSARY (QDS)
     Route: 065
     Dates: start: 20220107
  9. PIROXICAM [Concomitant]
     Active Substance: PIROXICAM
     Indication: Back pain
     Dosage: UNK (AS NECESSARY)
     Route: 065
     Dates: start: 20210825
  10. TERAZOSIN [Concomitant]
     Active Substance: TERAZOSIN HYDROCHLORIDE
     Indication: Product used for unknown indication
     Dosage: 1 DOSAGE FORM, ONCE A DAY (AT NIGHT)
     Route: 065
     Dates: start: 20220325

REACTIONS (1)
  - Rash macular [Recovered/Resolved]
